FAERS Safety Report 5120739-2 (Version None)
Quarter: 2006Q4

REPORT INFORMATION
  Report Type: 
  Country: None (occurrence: None)
  Receive Date: 20061003
  Receipt Date: 20061003
  Transmission Date: 20070319
  Serious: Yes (Hospitalization, Other)
  Sender: FDA-Public Use
  Company Number: None

PATIENT
  Sex: Female
  Weight: 58.0604 kg

DRUGS (1)
  1. ORTHO EVRA [Suspect]
     Indication: CONTRACEPTION
     Dosage: 1 PATCH WEEKLY EXTERNAL ON SKIN
     Route: 062
     Dates: start: 20010101, end: 20060601

REACTIONS (2)
  - HEPATIC NEOPLASM [None]
  - PULMONARY EMBOLISM [None]
